FAERS Safety Report 5829167-5 (Version None)
Quarter: 2008Q2

REPORT INFORMATION
  Report Type: 
  Country: None (occurrence: None)
  Receive Date: 20080601
  Receipt Date: 20080218
  Transmission Date: 20081010
  Serious: No
  Sender: FDA-Public Use
  Company Number: US200802004235

PATIENT
  Age: 53 Year
  Sex: Male

DRUGS (2)
  1. BYETTA [Suspect]
     Dosage: 5 UG, 2/D, SUBCUTANEOUS, 10 UG, 2/D, SUBCUTANEOUS
     Route: 058
  2. EXENATIDE PEN, DISPOSABLE DEVICE [Concomitant]

REACTIONS (1)
  - VISUAL ACUITY REDUCED [None]
